FAERS Safety Report 4907045-3 (Version None)
Quarter: 2006Q1

REPORT INFORMATION
  Report Type: 
  Country: None (occurrence: None)
  Receive Date: 20060207
  Receipt Date: 20060126
  Transmission Date: 20060701
  Serious: Yes (Hospitalization, Disabling)
  Sender: FDA-Public Use
  Company Number: 200610431BWH

PATIENT
  Age: 80 Year
  Sex: Female
  Weight: 46.9473 kg

DRUGS (5)
  1. SORAFENIB [Suspect]
     Indication: METASTATIC RENAL CELL CARCINOMA
     Dosage: 400 MG, BID, ORAL
     Route: 048
     Dates: start: 20051216, end: 20051224
  2. GLUCOPHAGE [Concomitant]
  3. AMITRIPTYLINE HCL [Concomitant]
  4. DETROL [Concomitant]
  5. STOOL SOFTENER [Concomitant]

REACTIONS (5)
  - ABNORMAL BEHAVIOUR [None]
  - ASTHENIA [None]
  - CONFUSIONAL STATE [None]
  - HYPERTENSION [None]
  - URTICARIA [None]
